FAERS Safety Report 12443356 (Version 2)
Quarter: 2016Q4

REPORT INFORMATION
  Report Type: Spontaneous
  Country: US (occurrence: US)
  Receive Date: 20160607
  Receipt Date: 20161110
  Transmission Date: 20170207
  Serious: No
  Sender: FDA-Public Use
  Company Number: US-GLAXOSMITHKLINE-US2016GSK069105

PATIENT
  Sex: Female

DRUGS (3)
  1. LAMICTAL [Suspect]
     Active Substance: LAMOTRIGINE
     Dosage: 150 MG, BID
  2. LAMICTAL [Suspect]
     Active Substance: LAMOTRIGINE
     Indication: VERTIGO
     Dosage: 100 MG, BID
     Dates: start: 2004
  3. LAMOTRIGINE. [Suspect]
     Active Substance: LAMOTRIGINE
     Indication: VERTIGO
     Dosage: UNK
     Dates: start: 201605

REACTIONS (5)
  - Product use issue [Unknown]
  - Product substitution issue [Unknown]
  - Nausea [Unknown]
  - Drug ineffective for unapproved indication [Unknown]
  - Feeling abnormal [Unknown]

NARRATIVE: CASE EVENT DATE: 2004
